FAERS Safety Report 8082554 (Version 2)
Quarter: 2015Q1

REPORT INFORMATION
  Report Type: Report from Study
  Country: JP (occurrence: JP)
  Receive Date: 20110809
  Receipt Date: 20150122
  Transmission Date: 20150721
  Serious: Yes (Death, Hospitalization, Other)
  Sender: FDA-Public Use
  Company Number: PHHO2010JP02049

PATIENT
  Age: 69 Year
  Sex: Male
  Weight: 70 kg

DRUGS (23)
  1. POVIDONE IODINE [Concomitant]
     Active Substance: POVIDONE-IODINE
     Indication: PROPHYLAXIS
  2. PITAVASTATIN [Concomitant]
     Active Substance: PITAVASTATIN
  3. MIYA-BM [Concomitant]
     Active Substance: CLOSTRIDIUM BUTYRICUM SPORES STRAIN M-55
     Indication: CONSTIPATION
  4. LAMISIL [Concomitant]
     Active Substance: TERBINAFINE HYDROCHLORIDE
     Indication: TINEA PEDIS
  5. CERNILTON [Concomitant]
  6. DUROTEP [Concomitant]
     Active Substance: FENTANYL
     Indication: PAIN
     Dosage: 4.2 MG, TID
     Dates: start: 20110501
  7. PLETAAL [Concomitant]
     Active Substance: CILOSTAZOL
     Indication: ARTERIOSCLEROSIS
  8. URIEF [Concomitant]
     Active Substance: SILODOSIN
  9. NASONEX [Concomitant]
     Active Substance: MOMETASONE FUROATE
  10. LUPRAC [Concomitant]
     Active Substance: TORSEMIDE
     Indication: HYPERTENSION
  11. COMELIAN [Concomitant]
     Active Substance: DILAZEP
     Indication: DIABETIC NEPHROPATHY
  12. XALATAN [Concomitant]
     Active Substance: LATANOPROST
     Indication: OCULAR HYPERTENSION
     Dosage: UNK
  13. VITAMINS NOS [Concomitant]
     Active Substance: VITAMINS
     Indication: ARTERIOSCLEROSIS
  14. FLIVAS [Concomitant]
     Active Substance: NAFTOPIDIL
     Indication: BENIGN PROSTATIC HYPERPLASIA
  15. MICARDIS [Concomitant]
     Active Substance: TELMISARTAN
     Indication: HYPERTENSION
  16. ALISKIREN [Suspect]
     Active Substance: ALISKIREN
     Indication: CARDIOVASCULAR DISORDER
     Dosage: UNK
     Route: 048
     Dates: start: 20090105, end: 20110416
  17. ATELEC [Concomitant]
     Active Substance: CILNIDIPINE
     Indication: HYPERTENSION
  18. AMARYL [Concomitant]
     Active Substance: GLIMEPIRIDE
     Indication: DIABETES MELLITUS
  19. URINORM [Concomitant]
     Active Substance: BENZBROMARONE
     Indication: HYPERURICAEMIA
  20. KARY UNI [Concomitant]
     Active Substance: PIRENOXINE
     Indication: CATARACT
  21. PURSENNID [Concomitant]
     Active Substance: SENNOSIDES A AND B
  22. OMEPRAL [Concomitant]
     Active Substance: OMEPRAZOLE
     Indication: CHRONIC GASTRITIS
  23. MOHRUS [Concomitant]
     Active Substance: KETOPROFEN
     Indication: OSTEOARTHRITIS

REACTIONS (6)
  - Muscular weakness [Fatal]
  - Metastases to central nervous system [Unknown]
  - Prostate cancer [Not Recovered/Not Resolved]
  - Small cell lung cancer [Fatal]
  - Concomitant disease progression [Unknown]
  - Retrograde ejaculation [Unknown]

NARRATIVE: CASE EVENT DATE: 20100107
